FAERS Safety Report 18336111 (Version 2)
Quarter: 2021Q2

REPORT INFORMATION
  Report Type: Report from Study
  Country: CN (occurrence: CN)
  Receive Date: 20201001
  Receipt Date: 20210401
  Transmission Date: 20210717
  Serious: Yes (Other)
  Sender: FDA-Public Use
  Company Number: CN-SHIRE-CN202030079

PATIENT
  Age: 35 Year
  Sex: Male
  Weight: 53 kg

DRUGS (4)
  1. KOVALTRY [Concomitant]
     Active Substance: ANTIHEMOPHILIC FACTOR, HUMAN RECOMBINANT
     Indication: PRODUCT USED FOR UNKNOWN INDICATION
     Dosage: UNK
  2. ADVATE [Suspect]
     Active Substance: ANTIHEMOPHILIC FACTOR, HUMAN RECOMBINANT
     Indication: PRODUCT USED FOR UNKNOWN INDICATION
     Dosage: 250 INTERNATIONAL UNIT
     Route: 050
     Dates: start: 201602
  3. ADVATE [Suspect]
     Active Substance: ANTIHEMOPHILIC FACTOR, HUMAN RECOMBINANT
     Indication: PRODUCT USED FOR UNKNOWN INDICATION
     Dosage: 250 INTERNATIONAL UNIT
     Route: 050
     Dates: start: 201602
  4. ADVATE [Suspect]
     Active Substance: ANTIHEMOPHILIC FACTOR, HUMAN RECOMBINANT
     Indication: PRODUCT USED FOR UNKNOWN INDICATION
     Dosage: 250 INTERNATIONAL UNIT
     Route: 050
     Dates: start: 201602

REACTIONS (1)
  - Anti factor VIII antibody increased [Recovered/Resolved]

NARRATIVE: CASE EVENT DATE: 20200911
